FAERS Safety Report 7616673-6 (Version None)
Quarter: 2011Q3

REPORT INFORMATION
  Report Type: 
  Country: None (occurrence: None)
  Receive Date: 20110717
  Receipt Date: 20110706
  Transmission Date: 20111222
  Serious: Yes (Other)
  Sender: FDA-Public Use
  Company Number: PHHY2011US60896

PATIENT
  Sex: Female

DRUGS (2)
  1. STEROIDS NOS [Suspect]
  2. GILENYA [Suspect]
     Indication: RELAPSING-REMITTING MULTIPLE SCLEROSIS
     Dosage: 0.5 MG, QD
     Route: 048
     Dates: start: 20110417

REACTIONS (2)
  - UVEITIS [None]
  - OPHTHALMOLOGICAL EXAMINATION ABNORMAL [None]
